FAERS Safety Report 18090448 (Version 1)
Quarter: 2020Q3

REPORT INFORMATION
  Report Type: Spontaneous
  Country: CN (occurrence: CN)
  Receive Date: 20200730
  Receipt Date: 20200730
  Transmission Date: 20201105
  Serious: Yes (Other)
  Sender: FDA-Public Use
  Company Number: CN-ROCHE-2648440

PATIENT
  Age: 34 Year
  Sex: Female

DRUGS (10)
  1. TECENTRIQ [Suspect]
     Active Substance: ATEZOLIZUMAB
     Indication: INVASIVE BREAST CARCINOMA
     Route: 065
     Dates: start: 201901, end: 202001
  2. VINORELBINE [Suspect]
     Active Substance: VINORELBINE TARTRATE
     Indication: METASTASES TO LUNG
  3. PACLITAXEL. [Suspect]
     Active Substance: PACLITAXEL
     Indication: METASTASES TO LUNG
     Route: 065
     Dates: start: 201901, end: 202001
  4. CARBOPLATIN. [Suspect]
     Active Substance: CARBOPLATIN
     Indication: INVASIVE BREAST CARCINOMA
     Dosage: EVERY 21 DAYS, 2 CYCLES
     Route: 065
     Dates: start: 201712, end: 201801
  5. CARBOPLATIN. [Suspect]
     Active Substance: CARBOPLATIN
     Indication: METASTASES TO LUNG
  6. VINORELBINE [Suspect]
     Active Substance: VINORELBINE TARTRATE
     Indication: INVASIVE BREAST CARCINOMA
     Route: 048
     Dates: start: 20200513, end: 202007
  7. TECENTRIQ [Suspect]
     Active Substance: ATEZOLIZUMAB
     Indication: METASTASES TO LUNG
  8. TORIPALIMAB. [Suspect]
     Active Substance: TORIPALIMAB
     Indication: INVASIVE BREAST CARCINOMA
     Route: 041
     Dates: start: 20200513, end: 202007
  9. TORIPALIMAB. [Suspect]
     Active Substance: TORIPALIMAB
     Indication: METASTASES TO LUNG
  10. PACLITAXEL. [Suspect]
     Active Substance: PACLITAXEL
     Indication: INVASIVE BREAST CARCINOMA
     Dosage: EVERY 21 DAYS, 2 CYCLES
     Route: 065
     Dates: start: 201712, end: 201801

REACTIONS (6)
  - Intentional product use issue [Unknown]
  - Gastrointestinal disorder [Unknown]
  - Myelosuppression [Unknown]
  - Off label use [Unknown]
  - Alopecia [Unknown]
  - Hypothyroidism [Unknown]
